FAERS Safety Report 4461663-8 (Version None)
Quarter: 2004Q3

REPORT INFORMATION
  Report Type: 
  Country: None (occurrence: None)
  Receive Date: 20040924
  Receipt Date: 20040920
  Transmission Date: 20050211
  Serious: Yes (Hospitalization)
  Sender: FDA-Public Use
  Company Number: HQWYE335501DEC03

PATIENT
  Age: 70 Year
  Sex: Male
  Weight: 55.5 kg

DRUGS (10)
  1. MYLOTARG [Suspect]
     Indication: ACUTE MYELOID LEUKAEMIA
     Dosage: 14.9 MG 1X PER 1 DAY, INTRAVENOUS
     Route: 042
     Dates: start: 20031103, end: 20031103
  2. CARDIZEM [Concomitant]
  3. PROTONIX [Concomitant]
  4. MEGACE [Concomitant]
  5. COLACE (DOCUSATE SODIUM) [Concomitant]
  6. SENOKOT [Concomitant]
  7. FLUCONAZOLE [Concomitant]
  8. LEVAQUIN [Concomitant]
  9. ACYCLOVIR [Concomitant]
  10. DYAZIDE [Concomitant]

REACTIONS (13)
  - ANOREXIA [None]
  - ASPARTATE AMINOTRANSFERASE INCREASED [None]
  - ASTHENIA [None]
  - BILIARY NEOPLASM [None]
  - BLOOD ALKALINE PHOSPHATASE INCREASED [None]
  - DISEASE PROGRESSION [None]
  - DYSSTASIA [None]
  - FATIGUE [None]
  - FEBRILE NEUTROPENIA [None]
  - HAEMOGLOBIN DECREASED [None]
  - PLATELET COUNT ABNORMAL [None]
  - WEIGHT INCREASED [None]
  - WHITE BLOOD CELL COUNT DECREASED [None]
